FAERS Safety Report 15142854 (Version 1)
Quarter: 2018Q3

REPORT INFORMATION
  Report Type: Spontaneous
  Country: US (occurrence: US)
  Receive Date: 20180618
  Receipt Date: 20180618
  Transmission Date: 20181010
  Serious: Yes (Other)
  Sender: FDA-Public Use
  Company Number: None

PATIENT
  Age: 46 Year
  Sex: Female
  Weight: 72.9 kg

DRUGS (4)
  1. VITAMIN D [Concomitant]
     Active Substance: CHOLECALCIFEROL
  2. CALCIUM [Concomitant]
     Active Substance: CALCIUM
  3. DEXTROAMPHETAMINE. [Suspect]
     Active Substance: DEXTROAMPHETAMINE
     Indication: ATTENTION DEFICIT/HYPERACTIVITY DISORDER
     Dosage: ?          QUANTITY:1 DF DOSAGE FORM;?
     Route: 048
  4. BIOTIN [Concomitant]
     Active Substance: BIOTIN

REACTIONS (4)
  - Therapeutic response changed [None]
  - Rash generalised [None]
  - Product substitution issue [None]
  - Therapeutic product ineffective [None]

NARRATIVE: CASE EVENT DATE: 20180110
